FAERS Safety Report 7438097-7 (Version None)
Quarter: 2011Q2

REPORT INFORMATION
  Report Type: 
  Country: None (occurrence: None)
  Receive Date: 20110419
  Receipt Date: 20110405
  Transmission Date: 20111010
  Serious: Yes (Other)
  Sender: FDA-Public Use
  Company Number: 030758

PATIENT
  Age: 28 Year
  Sex: Male

DRUGS (1)
  1. LACOSAMIDE [Suspect]
     Indication: EPILEPSY

REACTIONS (3)
  - DYSPHAGIA [None]
  - LEUKOCYTOSIS [None]
  - PLEURAL EFFUSION [None]
